FAERS Safety Report 25526975 (Version 2)
Quarter: 2025Q3

REPORT INFORMATION
  Report Type: Spontaneous
  Country: US (occurrence: US)
  Receive Date: 20250707
  Receipt Date: 20250813
  Transmission Date: 20251020
  Serious: No
  Sender: UCB
  Company Number: US-UCBSA-2025038493

PATIENT
  Sex: Female

DRUGS (5)
  1. NEUPRO [Suspect]
     Active Substance: ROTIGOTINE
     Indication: Restless legs syndrome
     Dosage: 1 MILLIGRAM, ONCE DAILY (QD)
     Dates: start: 202506
  2. LEVOTHYROXINE [Concomitant]
     Active Substance: LEVOTHYROXINE
     Indication: Thyroid disorder
  3. LOSARTAN [Concomitant]
     Active Substance: LOSARTAN
     Indication: Renal disorder
  4. ATORVASTATIN [Concomitant]
     Active Substance: ATORVASTATIN
     Indication: Hyperlipidaemia
  5. BIMEKIZUMAB [Concomitant]
     Active Substance: BIMEKIZUMAB
     Indication: Rheumatoid arthritis

REACTIONS (3)
  - Product use issue [Unknown]
  - Product adhesion issue [Unknown]
  - Therapeutic product effect incomplete [Unknown]
